FAERS Safety Report 20375114 (Version 2)
Quarter: 2022Q1

REPORT INFORMATION
  Report Type: Spontaneous
  Country: CN (occurrence: CN)
  Receive Date: 20220125
  Receipt Date: 20220317
  Transmission Date: 20220424
  Serious: Yes (Other)
  Sender: FDA-Public Use
  Company Number: CN-SA-SAC20220118000799

PATIENT
  Age: 55 Year
  Sex: Male

DRUGS (3)
  1. HYDROCHLOROTHIAZIDE\IRBESARTAN [Suspect]
     Active Substance: HYDROCHLOROTHIAZIDE\IRBESARTAN
     Indication: Hypertension
     Dosage: 150 MG, QD
  2. METOPROLOL SUCCINATE [Concomitant]
     Active Substance: METOPROLOL SUCCINATE
     Indication: Hypertension
     Dosage: 47.5 MG, QD
  3. LEVAMLODIPINE BESYLATE [Concomitant]
     Active Substance: LEVAMLODIPINE BESYLATE
     Dosage: 5 MG, QD

REACTIONS (2)
  - Chest pain [Unknown]
  - Blood potassium decreased [Unknown]
